FAERS Safety Report 6524566-0 (Version None)
Quarter: 2010Q1

REPORT INFORMATION
  Report Type: 
  Country: None (occurrence: None)
  Receive Date: 20100104
  Receipt Date: 20091224
  Transmission Date: 20100710
  Serious: Yes (Disabling, Other)
  Sender: FDA-Public Use
  Company Number: US-ROCHE-676545

PATIENT
  Sex: Female

DRUGS (5)
  1. PEG-INTERFERON A-2A (RO 25-8310) [Suspect]
     Indication: HEPATITIS C
     Dosage: FORM: PRE-FILLED SYRINGE
     Route: 065
     Dates: start: 20090223
  2. RIBAVIRIN [Suspect]
     Indication: HEPATITIS C
     Dosage: DIVIDED DOSES
     Route: 065
     Dates: start: 20090223
  3. RIBAVIRIN [Suspect]
     Dosage: ONLY MORNING DOSE, DOSE LOWERED
     Route: 065
     Dates: start: 20090701
  4. RIBAVIRIN [Suspect]
     Dosage: INCREASED DOSE
     Route: 065
  5. RIBAVIRIN [Suspect]
     Dosage: MORNING DOSE ONLY, LOWERED DOSE
     Route: 065
     Dates: start: 20091201

REACTIONS (4)
  - ASTHENIA [None]
  - CHRONIC OBSTRUCTIVE PULMONARY DISEASE [None]
  - RED BLOOD CELL COUNT DECREASED [None]
  - WHITE BLOOD CELL COUNT DECREASED [None]
